FAERS Safety Report 16237363 (Version 1)
Quarter: 2019Q2

REPORT INFORMATION
  Report Type: Spontaneous
  Country: US (occurrence: US)
  Receive Date: 20190320
  Receipt Date: 20190320
  Transmission Date: 20190711
  Serious: Yes (Hospitalization)
  Sender: FDA-Public Use
  Company Number: None

PATIENT
  Age: 42 Year
  Sex: Male

DRUGS (1)
  1. OLD SPICE CLASSIC ORIGINAL SCENT [Suspect]
     Active Substance: ALUMINUM ZIRCONIUM TRICHLOROHYDREX GLY
     Dosage: ?          OTHER DOSE:1 SWIPE;?
     Route: 061
     Dates: end: 201903

REACTIONS (4)
  - Blister [None]
  - Rash erythematous [None]
  - Pain of skin [None]
  - Dermatitis allergic [None]

NARRATIVE: CASE EVENT DATE: 201902
